FAERS Safety Report 17822120 (Version 10)
Quarter: 2020Q4

REPORT INFORMATION
  Report Type: Spontaneous
  Country: US (occurrence: US)
  Receive Date: 20200526
  Receipt Date: 20201215
  Transmission Date: 20210113
  Serious: Yes (Other)
  Sender: FDA-Public Use
  Company Number: NVSC2020US143258

PATIENT
  Sex: Female

DRUGS (1)
  1. VOTRIENT [Suspect]
     Active Substance: PAZOPANIB HYDROCHLORIDE
     Indication: UTERINE CANCER
     Dosage: 800 MG, QD
     Route: 048
     Dates: start: 20200506

REACTIONS (11)
  - Hair colour changes [Unknown]
  - Abdominal discomfort [Unknown]
  - Diarrhoea [Unknown]
  - Contusion [Unknown]
  - Capillary fragility [Recovering/Resolving]
  - Haemorrhage [Unknown]
  - Arthralgia [Unknown]
  - Product use in unapproved indication [Unknown]
  - Alopecia [Unknown]
  - Rash macular [Recovering/Resolving]
  - Pain in extremity [Unknown]
